FAERS Safety Report 17799559 (Version 2)
Quarter: 2020Q3

REPORT INFORMATION
  Report Type: Spontaneous
  Country: US (occurrence: US)
  Receive Date: 20200518
  Receipt Date: 20200817
  Transmission Date: 20201102
  Serious: No
  Sender: FDA-Public Use
  Company Number: US-THERAPEUTICSMD-2020TMD01910

PATIENT
  Age: 53 Year
  Sex: Female
  Weight: 56.69 kg

DRUGS (4)
  1. BIJUVA [Suspect]
     Active Substance: ESTRADIOL\PROGESTERONE
     Indication: OSTEOPOROSIS
     Dosage: 1 CAPSULES, 1X/DAY AT NIGHT
     Dates: start: 20200312, end: 20200416
  2. BIJUVA [Suspect]
     Active Substance: ESTRADIOL\PROGESTERONE
     Dosage: 1 CAPSULES, 1X/DAY AT NIGHT
     Dates: start: 20200422, end: 20200425
  3. NUTRAFOL VITAMINS [DIETARY SUPPLEMENT] [Suspect]
     Active Substance: DIETARY SUPPLEMENT
     Dosage: UNK
     Dates: start: 202003, end: 202004
  4. MELATONIN [Concomitant]
     Active Substance: MELATONIN

REACTIONS (4)
  - Drug hypersensitivity [Recovering/Resolving]
  - Eczema [Recovering/Resolving]
  - Eye swelling [Recovering/Resolving]
  - Off label use [Recovered/Resolved]

NARRATIVE: CASE EVENT DATE: 2020
